FAERS Safety Report 8514347-0 (Version None)
Quarter: 2012Q2

REPORT INFORMATION
  Report Type: 
  Country: None (occurrence: None)
  Receive Date: 20120406
  Receipt Date: 20120104
  Transmission Date: 20120825
  Serious: Yes (Hospitalization)
  Sender: FDA-Public Use
  Company Number: US-CYPR-2011-000088

PATIENT
  Sex: Female
  Weight: 98 kg

DRUGS (8)
  1. IMDUR [Concomitant]
  2. CYPHER STENT [Concomitant]
  3. TOPROL-XL [Concomitant]
  4. ZOCOR [Concomitant]
  5. CLOPIDOGREL [Suspect]
     Indication: ANTIPLATELET THERAPY
     Dosage: (75 MG QD ORAL)
     Route: 048
     Dates: start: 20110413
  6. HYDROCHLOROTHIAZIDE W/QUINAPRIL [Concomitant]
  7. ASPIRIN [Suspect]
     Indication: CORONARY ARTERY DISEASE
     Dosage: (325 MG QD ORAL)
     Route: 048
     Dates: start: 20081022
  8. METFORMIN HYDROCHLORIDE [Concomitant]

REACTIONS (1)
  - NON-CARDIAC CHEST PAIN [None]
